FAERS Safety Report 10787787 (Version 2)
Quarter: 2015Q1

REPORT INFORMATION
  Report Type: Spontaneous
  Country: JP (occurrence: None)
  Receive Date: 20150210
  Receipt Date: 20150218
  Transmission Date: 20150721
  Serious: Yes (Death)
  Sender: FDA-Public Use
  Company Number: JP-2015-0377

PATIENT
  Age: 80 Year
  Sex: Female

DRUGS (1)
  1. NAVELBINE [Suspect]
     Active Substance: VINORELBINE TARTRATE
     Indication: BREAST CANCER
     Route: 042

REACTIONS (10)
  - Pneumonia [None]
  - Sepsis [None]
  - Multi-organ failure [None]
  - Diverticular perforation [None]
  - Ileus paralytic [None]
  - Diverticulitis [None]
  - Vomiting [None]
  - Megacolon [None]
  - Asthma [None]
  - Disseminated intravascular coagulation [None]

NARRATIVE: CASE EVENT DATE: 20150126
